FAERS Safety Report 12574613 (Version 3)
Quarter: 2016Q4

REPORT INFORMATION
  Report Type: Spontaneous
  Country: US (occurrence: US)
  Receive Date: 20160720
  Receipt Date: 20161115
  Transmission Date: 20170207
  Serious: Yes (Other)
  Sender: FDA-Public Use
  Company Number: US-BAYER-2016-136334

PATIENT
  Age: 69 Year
  Sex: Female

DRUGS (4)
  1. DIOVAN [Concomitant]
     Active Substance: VALSARTAN
     Dosage: UNK
  2. ASPIRIN. [Concomitant]
     Active Substance: ASPIRIN
     Dosage: UNK
  3. FLAGYL [Concomitant]
     Active Substance: METRONIDAZOLE\METRONIDAZOLE HYDROCHLORIDE
     Dosage: UNK
  4. CIPRO [Suspect]
     Active Substance: CIPROFLOXACIN HYDROCHLORIDE
     Indication: DIVERTICULITIS
     Dosage: UNK
     Dates: start: 20140220, end: 20140303

REACTIONS (11)
  - Neuropathy peripheral [None]
  - Arthralgia [Not Recovered/Not Resolved]
  - Paralysis [None]
  - Peroneal nerve palsy [None]
  - Dizziness [None]
  - Joint range of motion decreased [None]
  - Off label use [None]
  - Monoplegia [None]
  - Tendonitis [None]
  - Tendon rupture [None]
  - Abasia [None]

NARRATIVE: CASE EVENT DATE: 201402
